FAERS Safety Report 6599477-5 (Version None)
Quarter: 2010Q1

REPORT INFORMATION
  Report Type: 
  Country: None (occurrence: None)
  Receive Date: 20100224
  Receipt Date: 20100212
  Transmission Date: 20100710
  Serious: Yes (Other)
  Sender: FDA-Public Use
  Company Number: CA-BAYER-201011044BCC

PATIENT
  Age: 61 Year
  Sex: Female
  Weight: 103 kg

DRUGS (5)
  1. ALEVE (CAPLET) [Suspect]
     Indication: BACK PAIN
     Dosage: AS USED: 220/440 MG  UNIT DOSE: 220 MG
     Route: 048
     Dates: start: 20100110, end: 20100101
  2. DIAMICRON [Concomitant]
     Route: 065
  3. AVANDAMET [Concomitant]
     Route: 065
  4. SIMVASTATIN [Concomitant]
     Route: 065
  5. MICARDIS [Concomitant]
     Route: 065

REACTIONS (3)
  - HAEMATOCHEZIA [None]
  - HAEMORRHAGE [None]
  - LOWER GASTROINTESTINAL HAEMORRHAGE [None]
